FAERS Safety Report 19061990 (Version 1)
Quarter: 2021Q1

REPORT INFORMATION
  Report Type: Report from Study
  Country: None (occurrence: GR)
  Receive Date: 20210325
  Receipt Date: 20210325
  Transmission Date: 20210420
  Serious: Yes (Other)
  Sender: FDA-Public Use
  Company Number: GR-ABBVIE-21K-066-3820410-00

PATIENT
  Age: 83 Year
  Sex: Male
  Weight: 85 kg

DRUGS (12)
  1. NEXIUM [Concomitant]
     Active Substance: ESOMEPRAZOLE MAGNESIUM
     Indication: PRODUCT USED FOR UNKNOWN INDICATION
     Route: 048
  2. SEROPRAM [Concomitant]
     Indication: DEPRESSION
     Route: 048
  3. KLOREF [Concomitant]
     Indication: HYPOKALAEMIA
     Dosage: (1035/675) MG
     Route: 048
  4. LOPRESOR [Concomitant]
     Active Substance: METOPROLOL
     Indication: HYPERTENSION
     Route: 048
  5. LASIX [Concomitant]
     Active Substance: FUROSEMIDE
     Indication: PRODUCT USED FOR UNKNOWN INDICATION
     Route: 048
  6. DUODOPA [Suspect]
     Active Substance: CARBIDOPA\LEVODOPA
     Indication: PARKINSON^S DISEASE
     Dosage: MORNING DOSE: 17.5 ML; CONTINUOUS RATE: 2.3 ML/H; EXTRA DOSE: 2.2 ML
     Route: 050
     Dates: start: 20181112
  7. AMLODIPINE [Concomitant]
     Active Substance: AMLODIPINE BESYLATE
     Indication: PRODUCT USED FOR UNKNOWN INDICATION
     Route: 048
  8. DUODOPA [Suspect]
     Active Substance: CARBIDOPA\LEVODOPA
  9. AZILECT [Concomitant]
     Active Substance: RASAGILINE MESYLATE
     Indication: PARKINSON^S DISEASE
     Route: 048
  10. BESARTAN [Concomitant]
     Indication: HYPERTENSION
     Route: 048
  11. DUODART [Concomitant]
     Active Substance: DUTASTERIDE\TAMSULOSIN
     Indication: PROSTATIC DISORDER
     Dosage: (0.5/0.4) MG
     Route: 048
  12. ALDACTONE [Concomitant]
     Active Substance: SPIRONOLACTONE
     Indication: HYPOKALAEMIA
     Route: 048

REACTIONS (5)
  - Cerebral haemorrhage [Unknown]
  - Incorrect route of product administration [Recovered/Resolved]
  - Soliloquy [Not Recovered/Not Resolved]
  - Speech disorder [Not Recovered/Not Resolved]
  - Medication error [Unknown]

NARRATIVE: CASE EVENT DATE: 20210312
